FAERS Safety Report 9826537 (Version 1)
Quarter: 2013Q4

REPORT INFORMATION
  Report Type: Spontaneous
  Country: US (occurrence: None)
  Receive Date: 20131112
  Receipt Date: 20131112
  Transmission Date: 20140711
  Serious: Yes (Other)
  Sender: FDA-Public Use
  Company Number: US-012421

PATIENT
  Age: 66 Year
  Sex: Male
  Weight: 111.13 kg

DRUGS (11)
  1. PICO-SALAX [Suspect]
     Indication: BOWEL PREPARATION
     Dates: end: 2013
  2. LEVOTHYROXINE [Concomitant]
  3. CALCITROL [Concomitant]
  4. ATENOLOL [Concomitant]
  5. KLOR-CON [Concomitant]
  6. DILTIAZEM [Concomitant]
  7. LANSOPRAZOLE [Concomitant]
  8. E VITAMIN [Concomitant]
  9. CENTRUM SILVER /02363801 [Concomitant]
  10. VITAMIN D3 [Concomitant]
  11. CALCIUM [Concomitant]

REACTIONS (1)
  - Drug ineffective [None]
